FAERS Safety Report 5160059-3 (Version None)
Quarter: 2006Q4

REPORT INFORMATION
  Report Type: 
  Country: None (occurrence: None)
  Receive Date: 20061129
  Receipt Date: 20060828
  Transmission Date: 20070319
  Serious: No
  Sender: FDA-Public Use
  Company Number: US-GLAXOSMITHKLINE-A0618242A

PATIENT
  Age: 52 Year
  Sex: Female

DRUGS (5)
  1. WELLBUTRIN SR [Suspect]
     Indication: DEPRESSION
     Dosage: 150MG TWICE PER DAY
     Route: 048
     Dates: start: 20050927
  2. VITAMIN E [Concomitant]
  3. CITRUCEL [Concomitant]
  4. MAGNESIUM [Concomitant]
  5. ESTER-C [Concomitant]

REACTIONS (1)
  - DRUG INEFFECTIVE [None]
